FAERS Safety Report 8084078-2 (Version None)
Quarter: 2012Q1

REPORT INFORMATION
  Report Type: 
  Country: None (occurrence: None)
  Receive Date: 20120128
  Receipt Date: 20110127
  Transmission Date: 20120608
  Serious: No
  Sender: FDA-Public Use
  Company Number: US-ABBOTT-11P-163-0701486-00

PATIENT
  Sex: Female

DRUGS (17)
  1. MUPRIROCIN [Concomitant]
     Indication: PSORIASIS
     Route: 061
  2. MUPRIROCIN [Concomitant]
     Indication: SCRATCH
  3. TRIAMCINOLONE ACETONIDE [Concomitant]
     Indication: PSORIASIS
     Dosage: APPLY TO AFFECTED AREAS BID
  4. CLOBETASOL [Concomitant]
     Indication: PSORIASIS
     Dosage: 1 APPLICATION TO AFFECTED AREAS BID
  5. HYDROXYZINE HCL [Concomitant]
     Indication: PSORIASIS
     Dosage: 25/50 MG EVERY 4 HOURS
  6. MUPRIROCIN [Concomitant]
  7. VITAMIN B-12 [Concomitant]
     Indication: BLOOD IRON DECREASED
     Dosage: 1 TAB DAILY
  8. HUMIRA [Suspect]
     Indication: PSORIASIS
     Dates: start: 20110127
  9. TASARAC [Concomitant]
     Indication: PSORIASIS
     Dosage: GEL APPLY TO AFFECTED AREAS AT BEDTIME
     Route: 061
  10. ALPRAZOLAM [Concomitant]
     Indication: ANXIETY
     Dosage: 1 TABLET DAILY
  11. TRILIPIX [Concomitant]
     Indication: BLOOD CHOLESTEROL INCREASED
     Dosage: D.R. 1 TAB AR AT BEDTIME
  12. MUPRIROCIN [Concomitant]
     Indication: PRURITUS
  13. PROZAC [Concomitant]
     Indication: ANXIETY
  14. LUNESTA [Concomitant]
     Indication: INSOMNIA
     Dosage: 1 TABLET AT BEDTIME
  15. FORTEO [Concomitant]
     Indication: OSTEOPOROSIS
     Dosage: 600 MCG/2.4 ML DAILY
     Route: 058
  16. VITAMIN D [Concomitant]
     Indication: BLOOD IRON DECREASED
     Dosage: 1 TAB DAILY
  17. METFFORMIN HYDROCHLORIDE [Concomitant]
     Indication: TYPE 2 DIABETES MELLITUS
     Dosage: 15/500 MG 1 TABLET BID

REACTIONS (1)
  - INJECTION SITE HAEMORRHAGE [None]
